FAERS Safety Report 25134848 (Version 1)
Quarter: 2025Q1

REPORT INFORMATION
  Report Type: Report from Study
  Country: US (occurrence: US)
  Receive Date: 20250328
  Receipt Date: 20250328
  Transmission Date: 20250409
  Serious: Yes (Hospitalization, Other)
  Sender: AUROBINDO
  Company Number: US-AUROBINDO-AUR-APL-2025-016449

PATIENT
  Age: 50 Year
  Sex: Female

DRUGS (13)
  1. BELEODAQ [Suspect]
     Active Substance: BELINOSTAT
     Indication: Peripheral T-cell lymphoma unspecified stage IV
     Route: 065
  2. CYCLOPHOSPHAMIDE [Suspect]
     Active Substance: CYCLOPHOSPHAMIDE
     Indication: Peripheral T-cell lymphoma unspecified stage IV
     Dosage: 750 MILLIGRAM/SQ. METER, ONCE A DAY((ON DAY 1 OF 21 DAYS CYLE)
     Route: 042
     Dates: start: 20250221
  3. PREDNISONE [Suspect]
     Active Substance: PREDNISONE
     Indication: Peripheral T-cell lymphoma unspecified stage IV
     Dosage: 100 MILLIGRAM, ONCE A DAY(FROM DAY 1 TO DAY 5 OF 21 DAYS CYLE)
     Route: 048
     Dates: start: 20250221
  4. DOXORUBICIN [Suspect]
     Active Substance: DOXORUBICIN
     Indication: Peripheral T-cell lymphoma unspecified stage IV
     Dosage: 50 MILLIGRAM/SQ. METER, ONCE A DAY50 MILLIGRAM/SQ. METER, ONCE A DAY((ON DAY 1 OF 21 DAYS CYL)
     Route: 042
     Dates: start: 20250221
  5. VINCRISTINE [Suspect]
     Active Substance: VINCRISTINE
     Indication: Peripheral T-cell lymphoma unspecified stage IV
     Dosage: 1.4 MILLIGRAM/SQ. METER, ONCE A DAY(ON DAY 1 OF 21 DAYS CYLE)
     Route: 042
     Dates: start: 20250221
  6. FOLIC ACID [Concomitant]
     Active Substance: FOLIC ACID
     Indication: Supportive care
     Dosage: 25 MILLIGRAM, ONCE A DAY
     Route: 048
     Dates: start: 20250218
  7. ALLOPURINOL [Concomitant]
     Active Substance: ALLOPURINOL
     Indication: Inflammation
     Dosage: 300 MILLIGRAM, ONCE A DAY
     Route: 048
     Dates: start: 20250221
  8. ISONIAZID [Concomitant]
     Active Substance: ISONIAZID
     Indication: Tuberculosis
     Dosage: UNK UNK, ONCE A DAY
     Route: 048
     Dates: start: 20250220
  9. OMEPRAZOLE [Concomitant]
     Active Substance: OMEPRAZOLE
     Indication: Gastritis prophylaxis
     Dosage: 20 MILLIGRAM, ONCE A DAY
     Route: 048
     Dates: start: 20250220
  10. ONDANSETRON [Concomitant]
     Active Substance: ONDANSETRON
     Indication: Premedication
     Route: 042
     Dates: start: 20250221, end: 20250221
  11. PANTOPRAZOLE SODIUM [Concomitant]
     Active Substance: PANTOPRAZOLE SODIUM
     Indication: Premedication
     Route: 042
     Dates: start: 20250221, end: 20250221
  12. LEVOTHYROXINE SODIUM [Concomitant]
     Active Substance: LEVOTHYROXINE SODIUM
     Indication: Product used for unknown indication
     Route: 048
  13. PREDNISONE [Concomitant]
     Active Substance: PREDNISONE
     Indication: Product used for unknown indication
     Dosage: 30 MILLIGRAM, ONCE A DAY
     Route: 048
     Dates: start: 20250213

REACTIONS (1)
  - Tumour necrosis [Recovered/Resolved]

NARRATIVE: CASE EVENT DATE: 20250310
